FAERS Safety Report 20018185 (Version 1)
Quarter: 2021Q4

REPORT INFORMATION
  Report Type: Spontaneous
  Country: NL (occurrence: US)
  Receive Date: 20211101
  Receipt Date: 20211101
  Transmission Date: 20220303
  Serious: No
  Sender: FDA-Public Use
  Company Number: NL-NEUROCRINE BIOSCIENCES INC.-2021NBI06088

PATIENT

DRUGS (1)
  1. INGREZZA [Suspect]
     Active Substance: VALBENAZINE
     Indication: Tardive dyskinesia
     Dosage: 80 MILLIGRAM, QD
     Route: 048

REACTIONS (3)
  - Irregular breathing [Unknown]
  - Sleep disorder [Unknown]
  - Dizziness [Unknown]
